FAERS Safety Report 4437910-5 (Version None)
Quarter: 2004Q3

REPORT INFORMATION
  Report Type: 
  Country: None (occurrence: None)
  Receive Date: 20040831
  Receipt Date: 20040819
  Transmission Date: 20050211
  Serious: Yes (Death, Hospitalization)
  Sender: FDA-Public Use
  Company Number: NSADSS2002011264

PATIENT
  Sex: Female

DRUGS (8)
  1. RISPERDAL [Suspect]
     Indication: BIPOLAR DISORDER
     Dosage: 0.5 INTHE AM AND 1.0 MG IN THE PM
     Route: 049
  2. ZOLOFT [Concomitant]
  3. ATENOLOL [Concomitant]
  4. TRAZODONE [Concomitant]
  5. BUSPAR [Concomitant]
  6. KLONOPIN [Concomitant]
     Dosage: 1 MG IN THE AM AND 2 MG AT BEDTIME
  7. DEPAKOTE [Concomitant]
  8. VIOXX [Concomitant]

REACTIONS (11)
  - ACUTE ABDOMEN [None]
  - ACUTE RESPIRATORY DISTRESS SYNDROME [None]
  - AGITATION [None]
  - CHEST PAIN [None]
  - LETHARGY [None]
  - PLEURAL EFFUSION [None]
  - PNEUMONIA [None]
  - PNEUMOTHORAX [None]
  - RESPIRATORY FAILURE [None]
  - SEPSIS [None]
  - STAPHYLOCOCCAL INFECTION [None]
